FAERS Safety Report 8317535-1 (Version None)
Quarter: 2012Q2

REPORT INFORMATION
  Report Type: 
  Country: None (occurrence: None)
  Receive Date: 20120427
  Receipt Date: 20120425
  Transmission Date: 20120825
  Serious: Yes (Hospitalization, Other)
  Sender: FDA-Public Use
  Company Number: US-PFIZER INC-2012102850

PATIENT
  Sex: Female
  Weight: 74 kg

DRUGS (5)
  1. RANITIDINE [Concomitant]
     Indication: GASTROOESOPHAGEAL REFLUX DISEASE
     Dosage: UNK
  2. TIKOSYN [Suspect]
     Indication: HEART RATE INCREASED
  3. TIKOSYN [Suspect]
     Indication: PANIC ATTACK
     Dosage: 0.125 MG, 2X/DAY
     Route: 048
     Dates: start: 20120322
  4. LOSARTAN [Concomitant]
     Indication: HYPERTENSION
     Dosage: UNK
  5. XARELTO [Concomitant]
     Dosage: UNK

REACTIONS (3)
  - LUNG INFECTION [None]
  - HEART RATE INCREASED [None]
  - RESPIRATORY TRACT INFECTION [None]
